FAERS Safety Report 5419236-6 (Version None)
Quarter: 2007Q3

REPORT INFORMATION
  Report Type: 
  Country: None (occurrence: None)
  Receive Date: 20070816
  Receipt Date: 20070816
  Transmission Date: 20080115
  Serious: Yes (Life-Threatening, Other)
  Sender: FDA-Public Use
  Company Number: None

PATIENT
  Age: 82 Year
  Sex: Male
  Weight: 83.9154 kg

DRUGS (1)
  1. CASODEX [Suspect]
     Indication: PROSTATIC SPECIFIC ANTIGEN INCREASED
     Dosage: 1 TABLET USED ONE A DAY 1 REFILL
     Dates: start: 20070516, end: 20070517

REACTIONS (9)
  - ABASIA [None]
  - ASTHENIA [None]
  - BLOOD PRESSURE INCREASED [None]
  - HEAD DISCOMFORT [None]
  - INSOMNIA [None]
  - LOSS OF CONSCIOUSNESS [None]
  - MENTAL DISORDER [None]
  - PRESYNCOPE [None]
  - TINNITUS [None]
